FAERS Safety Report 8433902-X (Version None)
Quarter: 2012Q2

REPORT INFORMATION
  Report Type: 
  Country: None (occurrence: None)
  Receive Date: 20120323
  Receipt Date: 20110621
  Transmission Date: 20120825
  Serious: Yes (Other)
  Sender: FDA-Public Use
  Company Number: 163-21880-11062991

PATIENT
  Age: 74 Year
  Sex: Male
  Weight: 94 kg

DRUGS (1)
  1. REVLIMID [Suspect]
     Indication: NEOPLASM
     Dosage: 25 MG, 1 IN 1 D, PO, 5 MG, DAYS 1 THROUQH 21, 28 DAY CYCLE, PO
     Route: 048
     Dates: start: 20091009

REACTIONS (2)
  - DRUG INEFFECTIVE [None]
  - FULL BLOOD COUNT DECREASED [None]
